FAERS Safety Report 11846926 (Version 2)
Quarter: 2015Q4

REPORT INFORMATION
  Report Type: Spontaneous
  Country: US (occurrence: US)
  Receive Date: 20151217
  Receipt Date: 20151223
  Transmission Date: 20160305
  Serious: Yes (Death, Life-Threatening, Hospitalization, Other)
  Sender: FDA-Public Use
  Company Number: US-UNITED THERAPEUTICS-UNT-2015-015735

PATIENT
  Sex: Female

DRUGS (2)
  1. REMODULIN [Suspect]
     Active Substance: TREPROSTINIL
     Indication: PRODUCT USED FOR UNKNOWN INDICATION
     Dosage: UNK
     Route: 058
     Dates: start: 20151021, end: 20151025
  2. REMODULIN [Suspect]
     Active Substance: TREPROSTINIL
     Dosage: UNK
     Route: 041
     Dates: start: 20151025

REACTIONS (6)
  - Acute kidney injury [Unknown]
  - Infusion site oedema [Unknown]
  - Clostridium difficile colitis [Recovered/Resolved]
  - Colitis [Fatal]
  - Hyponatraemia [Unknown]
  - Infusion site cellulitis [Unknown]

NARRATIVE: CASE EVENT DATE: 2015
